FAERS Safety Report 16944014 (Version 1)
Quarter: 2019Q4

REPORT INFORMATION
  Report Type: Report from Study
  Country: JP (occurrence: JP)
  Receive Date: 20191022
  Receipt Date: 20191022
  Transmission Date: 20200122
  Serious: Yes (Death, Other)
  Sender: FDA-Public Use
  Company Number: JP-INGENUS PHARMACEUTICALS, LLC-2019INF000340

PATIENT

DRUGS (1)
  1. DOCETAXEL. [Suspect]
     Active Substance: DOCETAXEL
     Indication: OESOPHAGEAL SQUAMOUS CELL CARCINOMA
     Dosage: 75 MILLIGRAM/SQ. METER, FOR AT LEAST 60 MINUTES EVERY 3 WEEKS (EACH CYCLE WAS 3 WEEKS)
     Route: 042

REACTIONS (1)
  - Spinal cord abscess [Fatal]
